FAERS Safety Report 13638896 (Version 1)
Quarter: 2017Q2

REPORT INFORMATION
  Report Type: Spontaneous
  Country: US (occurrence: US)
  Receive Date: 20170609
  Receipt Date: 20170609
  Transmission Date: 20170830
  Serious: No
  Sender: FDA-Public Use
  Company Number: US-BAYER-2017-111318

PATIENT
  Sex: Female

DRUGS (1)
  1. MIRENA [Suspect]
     Active Substance: LEVONORGESTREL
     Indication: ABDOMINAL PAIN LOWER
     Dosage: 20 MCG/24HR, CONT
     Route: 015
     Dates: start: 20170130

REACTIONS (3)
  - Drug ineffective for unapproved indication [Unknown]
  - Off label use of device [Unknown]
  - Adverse event [Unknown]

NARRATIVE: CASE EVENT DATE: 2017
